FAERS Safety Report 9127564 (Version 1)
Quarter: 2013Q1

REPORT INFORMATION
  Report Type: Spontaneous
  Country: US (occurrence: US)
  Receive Date: 20130228
  Receipt Date: 20130228
  Transmission Date: 20140127
  Serious: Yes (Other)
  Sender: FDA-Public Use
  Company Number: US-GLAXOSMITHKLINE-A0983771A

PATIENT
  Sex: Female

DRUGS (10)
  1. LAMICTAL [Suspect]
     Indication: BIPOLAR DISORDER
     Dosage: 200MG PER DAY
     Route: 048
     Dates: start: 200303, end: 2009
  2. ZANTAC [Concomitant]
  3. SINGULAIR [Concomitant]
  4. LEXAPRO [Concomitant]
  5. HALDOL [Concomitant]
  6. SEROQUEL [Concomitant]
  7. BENADRYL [Concomitant]
  8. ALLEGRA-D [Concomitant]
  9. FLONASE [Concomitant]
  10. FLOVENT [Concomitant]

REACTIONS (5)
  - Angioedema [Recovering/Resolving]
  - Rash erythematous [Unknown]
  - Urticaria [Unknown]
  - Swelling [Unknown]
  - Weight increased [Unknown]
